FAERS Safety Report 18480631 (Version 1)
Quarter: 2020Q4

REPORT INFORMATION
  Report Type: Report from Study
  Country: JP (occurrence: JP)
  Receive Date: 20201109
  Receipt Date: 20201109
  Transmission Date: 20210114
  Serious: Yes (Life-Threatening, Other)
  Sender: FDA-Public Use
  Company Number: JP-CELGENEUS-JPN-20201101075

PATIENT
  Age: 72 Year
  Sex: Male
  Weight: 55.6 kg

DRUGS (4)
  1. FLUCONAZOLE. [Concomitant]
     Active Substance: FLUCONAZOLE
     Indication: PROPHYLAXIS
     Dosage: UNKNOWN
     Route: 048
  2. ISTODAX [Suspect]
     Active Substance: ROMIDEPSIN
     Indication: ANGIOIMMUNOBLASTIC T-CELL LYMPHOMA
     Route: 041
     Dates: start: 20200623, end: 20200623
  3. ACICLOVIR [Concomitant]
     Active Substance: ACYCLOVIR
     Indication: PROPHYLAXIS
     Dosage: UNKNOWN
     Route: 048
  4. ISTODAX [Suspect]
     Active Substance: ROMIDEPSIN
     Route: 041
     Dates: start: 20200702, end: 20200702

REACTIONS (4)
  - Tumour lysis syndrome [Recovered/Resolved]
  - Platelet count decreased [Recovered/Resolved]
  - Electrocardiogram QT prolonged [Unknown]
  - Platelet count decreased [Recovered/Resolved]

NARRATIVE: CASE EVENT DATE: 20200623
